FAERS Safety Report 16720354 (Version 1)
Quarter: 2019Q3

REPORT INFORMATION
  Report Type: Spontaneous
  Country: US (occurrence: US)
  Receive Date: 20190820
  Receipt Date: 20190820
  Transmission Date: 20191005
  Serious: No
  Sender: FDA-Public Use
  Company Number: US-TEVA-2019-US-1092871

PATIENT
  Sex: Female
  Weight: 68 kg

DRUGS (2)
  1. NUVIGIL [Suspect]
     Active Substance: ARMODAFINIL
     Indication: SLEEP DISORDER
  2. NUVIGIL [Suspect]
     Active Substance: ARMODAFINIL
     Indication: NARCOLEPSY
     Dosage: 250 MILLIGRAM DAILY;
     Route: 065
     Dates: start: 2019

REACTIONS (5)
  - Psychomotor hyperactivity [Unknown]
  - Abdominal pain [Unknown]
  - Logorrhoea [Unknown]
  - Gastrointestinal disorder [Unknown]
  - Stomatitis [Unknown]
